FAERS Safety Report 15821395 (Version 1)
Quarter: 2018Q4

REPORT INFORMATION
  Report Type: Spontaneous
  Country: US (occurrence: US)
  Receive Date: 20181217
  Receipt Date: 20181217
  Transmission Date: 20190205
  Serious: No
  Sender: FDA-Public Use
  Company Number: None

PATIENT
  Age: 67 Year
  Sex: Female

DRUGS (1)
  1. TALTZ [Suspect]
     Active Substance: IXEKIZUMAB
     Dosage: :OTHER;?
     Route: 058
     Dates: start: 20180212

REACTIONS (4)
  - Arthritis [None]
  - Malaise [None]
  - Chronic obstructive pulmonary disease [None]
  - Psoriasis [None]

NARRATIVE: CASE EVENT DATE: 20180914
